FAERS Safety Report 9738061 (Version 1)
Quarter: 2013Q4

REPORT INFORMATION
  Report Type: Spontaneous
  Country: US (occurrence: US)
  Receive Date: 20131208
  Receipt Date: 20131208
  Transmission Date: 20140711
  Serious: No
  Sender: FDA-Public Use
  Company Number: -SAAVPROD-RENA-1002065

PATIENT
  Sex: 0

DRUGS (2)
  1. SEVELAMER CARBONATE [Suspect]
     Indication: PRODUCT USED FOR UNKNOWN INDICATION
     Dosage: 0.8 G, UNK
     Route: 065
  2. DOCUSATE SODIUM [Concomitant]
     Indication: CONSTIPATION
     Dosage: UNK (FOR YEARS)
     Route: 065

REACTIONS (1)
  - Constipation [Unknown]
